FAERS Safety Report 4867171-4 (Version None)
Quarter: 2005Q4

REPORT INFORMATION
  Report Type: 
  Country: None (occurrence: None)
  Receive Date: 20051222
  Receipt Date: 20051216
  Transmission Date: 20060501
  Serious: Yes (Other)
  Sender: FDA-Public Use
  Company Number: 2005169143

PATIENT
  Age: 68 Year
  Sex: Female

DRUGS (1)
  1. ATORVASTATIN CALCIUM [Suspect]
     Indication: BLOOD CHOLESTEROL INCREASED
     Dosage: 10 MG (10 MG, 1 IN 1 D), ORAL
     Route: 048
     Dates: start: 20021201

REACTIONS (4)
  - EYE HAEMORRHAGE [None]
  - GLAUCOMA SURGERY [None]
  - INTRAOCULAR PRESSURE INCREASED [None]
  - POST PROCEDURAL COMPLICATION [None]
